FAERS Safety Report 7307495-4 (Version None)
Quarter: 2011Q1

REPORT INFORMATION
  Report Type: 
  Country: None (occurrence: None)
  Receive Date: 20110211
  Receipt Date: 20101229
  Transmission Date: 20110831
  Serious: No
  Sender: FDA-Public Use
  Company Number: USA/USA/10/0017022

PATIENT
  Age: 84 Year
  Sex: Female
  Weight: 50.8029 kg

DRUGS (4)
  1. CELEXA [Concomitant]
  2. LANSOPRAZOLE [Suspect]
     Indication: NAUSEA
     Dosage: 30 MG, 1 IN 1 D, ORAL
     Route: 048
     Dates: start: 20101220, end: 20101227
  3. LEVOXYL [Concomitant]
  4. MULTAQ [Concomitant]

REACTIONS (1)
  - HEART RATE IRREGULAR [None]
